FAERS Safety Report 11166806 (Version 1)
Quarter: 2015Q2

REPORT INFORMATION
  Report Type: Spontaneous
  Country: US (occurrence: US)
  Receive Date: 20150605
  Receipt Date: 20150605
  Transmission Date: 20150821
  Serious: Yes (Other)
  Sender: FDA-Public Use
  Company Number: US-JNJFOC-20150516362

PATIENT
  Age: 48 Year
  Sex: Female
  Weight: 68 kg

DRUGS (7)
  1. TIZANIDINE (TIZANIDINE) [Concomitant]
     Active Substance: TIZANIDINE
     Indication: MUSCLE SPASMS
     Route: 048
  2. FLUOXETINE [Concomitant]
     Active Substance: FLUOXETINE\FLUOXETINE HYDROCHLORIDE
     Indication: DEPRESSION
     Route: 048
  3. MELOXICAM. [Concomitant]
     Active Substance: MELOXICAM
     Indication: ANTIINFLAMMATORY THERAPY
     Route: 048
     Dates: start: 2014
  4. NUCYNTA ER [Suspect]
     Active Substance: TAPENTADOL HYDROCHLORIDE
     Indication: PAIN
     Route: 048
  5. OMEPRAZOLE. [Concomitant]
     Active Substance: OMEPRAZOLE
     Indication: GASTROOESOPHAGEAL REFLUX DISEASE
     Route: 048
  6. NUCYNTA ER [Suspect]
     Active Substance: TAPENTADOL HYDROCHLORIDE
     Indication: FIBROMYALGIA
     Route: 048
     Dates: start: 201502
  7. IMITREX [Concomitant]
     Active Substance: SUMATRIPTAN\SUMATRIPTAN SUCCINATE
     Indication: MIGRAINE
     Route: 048

REACTIONS (4)
  - Adverse event [Recovered/Resolved]
  - Contusion [Recovered/Resolved]
  - Pruritus generalised [Recovered/Resolved]
  - Seizure [Not Recovered/Not Resolved]

NARRATIVE: CASE EVENT DATE: 201502
